FAERS Safety Report 12232768 (Version 1)
Quarter: 2016Q2

REPORT INFORMATION
  Report Type: Other
  Country: CN (occurrence: CN)
  Receive Date: 20160402
  Receipt Date: 20160402
  Transmission Date: 20160815
  Serious: No
  Sender: FDA-Public Use
  Company Number: CN-LUPIN PHARMACEUTICALS INC.-2016-00349

PATIENT
  Age: 40 Year
  Sex: Male

DRUGS (3)
  1. NIACIN. [Suspect]
     Active Substance: NIACIN
     Indication: POLYNEUROPATHY ALCOHOLIC
     Route: 065
  2. NIACIN. [Suspect]
     Active Substance: NIACIN
     Indication: NICOTINIC ACID DEFICIENCY
     Route: 065
  3. NIACIN. [Suspect]
     Active Substance: NIACIN
     Dosage: 50 MG/DAY IN DIVIDED DOSES
     Route: 065

REACTIONS (1)
  - Neuropathy peripheral [Recovering/Resolving]
